FAERS Safety Report 4549095-5 (Version None)
Quarter: 2004Q4

REPORT INFORMATION
  Report Type: 
  Country: None (occurrence: None)
  Receive Date: 20041227
  Receipt Date: 20040920
  Transmission Date: 20050328
  Serious: No
  Sender: FDA-Public Use
  Company Number: 04P-163-0273787-00

PATIENT
  Age: 59 Year
  Sex: Female
  Weight: 71.6683 kg

DRUGS (7)
  1. HUMIRA [Suspect]
     Indication: RHEUMATOID ARTHRITIS
     Dosage: 40 MG, 1 IN 2 WK, SUBCUTANEOUS
     Route: 058
     Dates: end: 20040801
  2. METHOTREXATE SODIUM [Concomitant]
  3. FOLIC ACID [Concomitant]
  4. ALBUTEROL [Concomitant]
  5. POTASSIUM [Concomitant]
  6. NERVE PILL [Concomitant]
  7. STOMACH PILL [Concomitant]

REACTIONS (1)
  - RASH GENERALISED [None]
